FAERS Safety Report 6068353-9 (Version None)
Quarter: 2009Q1

REPORT INFORMATION
  Report Type: 
  Country: None (occurrence: None)
  Receive Date: 20090203
  Receipt Date: 20090122
  Transmission Date: 20090719
  Serious: Yes (Hospitalization)
  Sender: FDA-Public Use
  Company Number: 2009AL000401

PATIENT
  Age: 35 Year
  Sex: Female

DRUGS (1)
  1. CLOBETASOL PROPIONATE [Suspect]
     Indication: ICHTHYOSIS
     Dosage: 25 G; QD; TOP
     Route: 061

REACTIONS (11)
  - ADRENAL SUPPRESSION [None]
  - BORDERLINE PERSONALITY DISORDER [None]
  - CHRONIC OBSTRUCTIVE PULMONARY DISEASE [None]
  - CUSHING'S SYNDROME [None]
  - INCORRECT DOSE ADMINISTERED [None]
  - INCORRECT DRUG ADMINISTRATION DURATION [None]
  - OSTEOPOROSIS [None]
  - SKIN ATROPHY [None]
  - SPINAL CORD COMPRESSION [None]
  - THORACIC VERTEBRAL FRACTURE [None]
  - TYPE 2 DIABETES MELLITUS [None]
